FAERS Safety Report 5568927-5 (Version None)
Quarter: 2007Q4

REPORT INFORMATION
  Report Type: 
  Country: None (occurrence: None)
  Receive Date: 20071220
  Receipt Date: 20070323
  Transmission Date: 20080405
  Serious: No
  Sender: FDA-Public Use
  Company Number: A0644350A

PATIENT

DRUGS (1)
  1. AVODART [Suspect]

REACTIONS (5)
  - ASTHENIA [None]
  - ERECTILE DYSFUNCTION [None]
  - INFECTION [None]
  - LIBIDO DECREASED [None]
  - WEIGHT DECREASED [None]
